FAERS Safety Report 7660815-3 (Version None)
Quarter: 2011Q3

REPORT INFORMATION
  Report Type: 
  Country: None (occurrence: None)
  Receive Date: 20110805
  Receipt Date: 20101123
  Transmission Date: 20111222
  Serious: No
  Sender: FDA-Public Use
  Company Number: US-ABBOTT-10P-163-0684144-00

PATIENT
  Sex: Female
  Weight: 93.07 kg

DRUGS (3)
  1. NIASPAN [Suspect]
     Indication: BLOOD CHOLESTEROL INCREASED
     Dates: start: 20100901, end: 20101101
  2. NIASPAN [Suspect]
     Dates: start: 20101101
  3. METFORMIN HCL [Concomitant]
     Indication: TYPE 2 DIABETES MELLITUS
     Dates: start: 20090101

REACTIONS (6)
  - BURNING SENSATION [None]
  - DECREASED APPETITE [None]
  - BLOOD CHOLESTEROL ABNORMAL [None]
  - FLUSHING [None]
  - DRUG INEFFECTIVE [None]
  - WEIGHT DECREASED [None]
